FAERS Safety Report 4696404-2 (Version None)
Quarter: 2005Q2

REPORT INFORMATION
  Report Type: 
  Country: None (occurrence: None)
  Receive Date: 20050620
  Receipt Date: 20050607
  Transmission Date: 20051028
  Serious: Yes (Hospitalization)
  Sender: FDA-Public Use
  Company Number: HQWYE327008JUN05

PATIENT
  Age: 56 Year
  Sex: Female
  Weight: 64.47 kg

DRUGS (2)
  1. PREMARIN [Suspect]
     Indication: HYSTERECTOMY
     Dosage: ORAL
     Route: 048
     Dates: start: 19900101, end: 20040701
  2. ACTONEL [Concomitant]

REACTIONS (1)
  - BLADDER CANCER [None]
